FAERS Safety Report 11199164 (Version 1)
Quarter: 2015Q2

REPORT INFORMATION
  Report Type: Spontaneous
  Country: US (occurrence: US)
  Receive Date: 20150618
  Receipt Date: 20150618
  Transmission Date: 20150821
  Serious: No
  Sender: FDA-Public Use
  Company Number: US-TEVA-509856USA

PATIENT
  Sex: Female

DRUGS (1)
  1. LAMOTRIGINE. [Suspect]
     Active Substance: LAMOTRIGINE
     Dates: start: 201409

REACTIONS (1)
  - Dyspepsia [Recovering/Resolving]

NARRATIVE: CASE EVENT DATE: 201409
